FAERS Safety Report 5608025-5 (Version None)
Quarter: 2008Q1

REPORT INFORMATION
  Report Type: 
  Country: None (occurrence: None)
  Receive Date: 20080128
  Receipt Date: 20080128
  Transmission Date: 20080703
  Serious: Yes (Life-Threatening, Hospitalization, Disabling, Other)
  Sender: FDA-Public Use
  Company Number: None

PATIENT
  Age: 36 Year
  Sex: Female
  Weight: 70.7611 kg

DRUGS (5)
  1. CYMBALTA [Suspect]
     Indication: DEPRESSION
     Dosage: 2 CAPSULES BY MOUTH 2 TIMES DAILY PO
     Route: 048
     Dates: start: 20070417, end: 20070909
  2. CYMBALTA [Suspect]
     Indication: PAIN
     Dosage: 2 CAPSULES BY MOUTH 2 TIMES DAILY PO
     Route: 048
     Dates: start: 20070417, end: 20070909
  3. KLONOPIN [Concomitant]
  4. WELLBUTRIN [Concomitant]
  5. LYRICA [Concomitant]

REACTIONS (12)
  - ABNORMAL BEHAVIOUR [None]
  - CRYING [None]
  - DRUG INEFFECTIVE [None]
  - FEELING ABNORMAL [None]
  - HALLUCINATIONS, MIXED [None]
  - INSOMNIA [None]
  - IRRITABILITY [None]
  - LOSS OF CONSCIOUSNESS [None]
  - MULTIPLE DRUG OVERDOSE INTENTIONAL [None]
  - SCREAMING [None]
  - SMOKER [None]
  - SUICIDAL IDEATION [None]
